FAERS Safety Report 8958782 (Version 3)
Quarter: 2014Q3

REPORT INFORMATION
  Report Type: Spontaneous
  Country: US (occurrence: US)
  Receive Date: 20121212
  Receipt Date: 20140828
  Transmission Date: 20150326
  Serious: Yes (Hospitalization, Disabling, Other)
  Sender: FDA-Public Use
  Company Number: US-009507513-1212USA003970

PATIENT
  Sex: Female
  Weight: 79.37 kg

DRUGS (2)
  1. NUVARING [Suspect]
     Active Substance: ETHINYL ESTRADIOL\ETONOGESTREL
     Indication: MENSTRUATION IRREGULAR
     Dosage: 11.7/2.7 MG, Q3W AS DIRECTED
     Route: 067
     Dates: start: 20071210, end: 20081002
  2. NUVARING [Suspect]
     Active Substance: ETHINYL ESTRADIOL\ETONOGESTREL
     Indication: MENSTRUAL DISORDER

REACTIONS (24)
  - Cerebral infarction [Recovering/Resolving]
  - Deep vein thrombosis [Unknown]
  - Deep vein thrombosis [Unknown]
  - Synovial cyst [Unknown]
  - Joint contracture [Unknown]
  - Diarrhoea [Unknown]
  - Off label use [Recovered/Resolved]
  - Arterial stent insertion [Unknown]
  - Vena cava filter insertion [Unknown]
  - Pyrexia [Unknown]
  - Cranioplasty [Unknown]
  - Hypertension [Unknown]
  - Brain oedema [Recovering/Resolving]
  - Bacterial infection [Recovering/Resolving]
  - Gastrooesophageal reflux disease [Unknown]
  - Craniectomy [Recovering/Resolving]
  - Extremity contracture [Unknown]
  - Metrorrhagia [Unknown]
  - Blood product transfusion [Unknown]
  - Gastroenterostomy [Unknown]
  - Urinary tract infection bacterial [Unknown]
  - Abscess drainage [Recovering/Resolving]
  - Dyslipidaemia [Unknown]
  - Diabetes mellitus [Unknown]

NARRATIVE: CASE EVENT DATE: 2007
